FAERS Safety Report 6555724-7 (Version None)
Quarter: 2010Q1

REPORT INFORMATION
  Report Type: 
  Country: None (occurrence: None)
  Receive Date: 20100125
  Receipt Date: 20100108
  Transmission Date: 20100710
  Serious: Yes (Other)
  Sender: FDA-Public Use
  Company Number: 09-AUR-10237

PATIENT
  Sex: Male

DRUGS (2)
  1. SIMVASTATIN [Suspect]
     Indication: HYPERCHOLESTEROLAEMIA
     Dosage: 20MG,ORAL
     Route: 048
     Dates: start: 20080424, end: 20090411
  2. ALFUZOSIN 10MG [Concomitant]

REACTIONS (1)
  - TENDONITIS [None]
